FAERS Safety Report 5700764-0 (Version None)
Quarter: 2008Q2

REPORT INFORMATION
  Report Type: 
  Country: None (occurrence: None)
  Receive Date: 20080410
  Receipt Date: 20080403
  Transmission Date: 20081010
  Serious: Yes (Other)
  Sender: FDA-Public Use
  Company Number: US-ASTRAZENECA-2006UW11410

PATIENT
  Age: 562 Month
  Sex: Male
  Weight: 131.4 kg

DRUGS (3)
  1. SEROQUEL [Suspect]
     Indication: SLEEP DISORDER
     Route: 048
     Dates: start: 19990101, end: 20060101
  2. SEROQUEL [Suspect]
     Indication: DEPRESSION
     Route: 048
     Dates: start: 19990101, end: 20060101
  3. VALIUM [Concomitant]

REACTIONS (3)
  - DIABETES MELLITUS [None]
  - LIMB INJURY [None]
  - PAIN [None]
